FAERS Safety Report 19745354 (Version 2)
Quarter: 2021Q3

REPORT INFORMATION
  Report Type: Spontaneous
  Country: CN (occurrence: CN)
  Receive Date: 20210825
  Receipt Date: 20210909
  Transmission Date: 20211014
  Serious: Yes (Death, Life-Threatening, Other)
  Sender: FDA-Public Use
  Company Number: CN-PFIZER INC-202101042194

PATIENT
  Age: 93 Year
  Sex: Male

DRUGS (1)
  1. ZYVOX [Suspect]
     Active Substance: LINEZOLID
     Indication: SEPSIS
     Dosage: 0.6 G, 2X/DAY (EVERY 12 HOURS)
     Route: 041
     Dates: start: 20210727, end: 20210808

REACTIONS (5)
  - White blood cell count decreased [Unknown]
  - Pneumonia [Fatal]
  - Haemoptysis [Unknown]
  - Respiratory failure [Fatal]
  - Platelet count decreased [Unknown]

NARRATIVE: CASE EVENT DATE: 20210804
